FAERS Safety Report 12450337 (Version 3)
Quarter: 2016Q3

REPORT INFORMATION
  Report Type: Spontaneous
  Country: US (occurrence: US)
  Receive Date: 20160609
  Receipt Date: 20160711
  Transmission Date: 20161109
  Serious: No
  Sender: FDA-Public Use
  Company Number: US-PFIZER INC-2016284865

PATIENT
  Age: 68 Year
  Sex: Female
  Weight: 57.15 kg

DRUGS (2)
  1. ESTRING [Suspect]
     Active Substance: ESTRADIOL
     Indication: INADEQUATE LUBRICATION
     Dosage: UNK, EVERY 3 MONTHS
     Route: 067
  2. ESTRING [Suspect]
     Active Substance: ESTRADIOL
     Dosage: 2 MG, UNK (1 RING)
     Route: 067
     Dates: end: 20160602

REACTIONS (3)
  - Bacterial vaginosis [Recovered/Resolved]
  - Vaginal discharge [Recovered/Resolved]
  - Product quality issue [Unknown]

NARRATIVE: CASE EVENT DATE: 20160602
